FAERS Safety Report 7070652-9 (Version None)
Quarter: 2010Q4

REPORT INFORMATION
  Report Type: 
  Country: None (occurrence: None)
  Receive Date: 20101029
  Receipt Date: 20101018
  Transmission Date: 20110411
  Serious: Yes (Hospitalization, Other)
  Sender: FDA-Public Use
  Company Number: BR-PFIZER INC-2010125227

PATIENT
  Age: 62 Year
  Sex: Female
  Weight: 70 kg

DRUGS (8)
  1. CHAMPIX [Suspect]
     Indication: TOBACCO ABUSE
     Dosage: UNK MG, 1X/DAY
     Route: 048
     Dates: start: 20070101, end: 20070101
  2. CHAMPIX [Suspect]
     Dosage: 0.5 MG, 1X/DAY
     Route: 048
     Dates: start: 20101001
  3. CHAMPIX [Suspect]
     Dosage: 1 MG, UNK
     Route: 048
  4. PURAN T4 [Concomitant]
     Indication: THYROID DISORDER
     Dosage: UNK
     Dates: start: 20040101
  5. BUPROPION [Concomitant]
     Indication: ANXIETY
     Dosage: UNK
     Dates: start: 20070101
  6. PAROXETINE HYDROCHLORIDE [Concomitant]
     Dosage: UNK
  7. OLCADIL [Concomitant]
     Dosage: UNK
  8. LIPITOR [Concomitant]
     Indication: BLOOD CHOLESTEROL ABNORMAL
     Dosage: UNK

REACTIONS (2)
  - ANXIETY [None]
  - HYPERTENSION [None]
